FAERS Safety Report 16788351 (Version 1)
Quarter: 2019Q3

REPORT INFORMATION
  Report Type: Spontaneous
  Country: US (occurrence: US)
  Receive Date: 20190910
  Receipt Date: 20190910
  Transmission Date: 20191005
  Serious: No
  Sender: FDA-Public Use
  Company Number: US-CELGENEUS-USA-20190900808

PATIENT
  Sex: Female

DRUGS (5)
  1. XANAX XR [Concomitant]
     Active Substance: ALPRAZOLAM
     Indication: PRODUCT USED FOR UNKNOWN INDICATION
     Route: 048
     Dates: start: 20190731
  2. IBUPROFEN. [Concomitant]
     Active Substance: IBUPROFEN
     Indication: PRODUCT USED FOR UNKNOWN INDICATION
     Route: 048
     Dates: start: 20190731
  3. OTEZLA [Suspect]
     Active Substance: APREMILAST
     Indication: DERMATITIS ATOPIC
     Dosage: STARTER PACK
     Route: 048
     Dates: start: 20190801
  4. ADDERALL XR [Concomitant]
     Active Substance: AMPHETAMINE ASPARTATE\AMPHETAMINE SULFATE\DEXTROAMPHETAMINE SACCHARATE\DEXTROAMPHETAMINE SULFATE
     Indication: PRODUCT USED FOR UNKNOWN INDICATION
     Route: 048
     Dates: start: 20190731
  5. OTEZLA [Suspect]
     Active Substance: APREMILAST
     Indication: OFF LABEL USE
     Dosage: 60 MILLIGRAM
     Route: 048
     Dates: start: 201908

REACTIONS (2)
  - Rash [Not Recovered/Not Resolved]
  - Product dose omission [Unknown]

NARRATIVE: CASE EVENT DATE: 2019
